FAERS Safety Report 9330605 (Version 3)
Quarter: 2013Q3

REPORT INFORMATION
  Report Type: Spontaneous
  Country: BR (occurrence: BR)
  Receive Date: 20130605
  Receipt Date: 20130902
  Transmission Date: 20140515
  Serious: Yes (Other)
  Sender: FDA-Public Use
  Company Number: PHHY2013BR056385

PATIENT
  Age: 72 Year
  Sex: Female
  Weight: 62 kg

DRUGS (7)
  1. FORASEQ [Suspect]
     Indication: CHRONIC OBSTRUCTIVE PULMONARY DISEASE
     Dosage: 2 DF, DAILY
  2. FORASEQ [Suspect]
     Dosage: UNK UKN, UNK
     Route: 048
  3. FORASEQ [Suspect]
     Dosage: 2 DF, DAILY
  4. OMEPRAZOLE [Concomitant]
     Indication: ABDOMINAL PAIN UPPER
     Dosage: 1 DF, DAILY
     Route: 048
  5. TRAYENTA [Concomitant]
     Indication: DIABETES MELLITUS
     Dosage: 1 DF, DAILY
     Route: 048
  6. METFORMIN [Concomitant]
     Indication: DIABETES MELLITUS
     Dosage: 1 DF, DAILY
     Route: 048
  7. LOSARTAN [Concomitant]
     Indication: HYPERTENSION
     Dosage: 1 DF, DAILY
     Route: 048

REACTIONS (3)
  - Diverticulum [Recovered/Resolved]
  - Somnolence [Recovered/Resolved]
  - Incorrect route of drug administration [Recovered/Resolved]
